FAERS Safety Report 4297100-6 (Version None)
Quarter: 2004Q1

REPORT INFORMATION
  Report Type: 
  Country: None (occurrence: None)
  Receive Date: 20040217
  Receipt Date: 20040210
  Transmission Date: 20041129
  Serious: Yes (Hospitalization)
  Sender: FDA-Public Use
  Company Number: WAES 0402GBR00112

PATIENT
  Age: 82 Year
  Sex: Female

DRUGS (6)
  1. ASPIRIN [Suspect]
     Indication: CORONARY ARTERY DISEASE
     Route: 048
     Dates: end: 20031230
  2. ATENOLOL [Concomitant]
     Route: 048
  3. ISOSORBIDE MONONITRATE [Concomitant]
     Route: 048
  4. LEVOTHYROXINE SODIUM [Concomitant]
     Route: 048
  5. PYRIDOXINE [Concomitant]
     Route: 048
  6. VIOXX [Suspect]
     Indication: BACK PAIN
     Route: 048
     Dates: end: 20031230

REACTIONS (2)
  - MELAENA [None]
  - RECTAL HAEMORRHAGE [None]
